FAERS Safety Report 5127808-1 (Version None)
Quarter: 2006Q4

REPORT INFORMATION
  Report Type: 
  Country: None (occurrence: None)
  Receive Date: 20061016
  Receipt Date: 20061005
  Transmission Date: 20070319
  Serious: Yes (Other)
  Sender: FDA-Public Use
  Company Number: US-PURDUE-USA_2006_0025353

PATIENT
  Age: 14 Year
  Sex: Female

DRUGS (4)
  1. OXYCODONE HCL [Suspect]
     Indication: DRUG ABUSER
     Dosage: UNK, UNK
  2. MORPHINE SULFATE [Suspect]
     Indication: DRUG ABUSER
     Dosage: UNK, UNK
  3. METHADONE HCL [Suspect]
     Indication: DRUG ABUSER
     Dosage: UNK, UNK
  4. HEROIN [Suspect]
     Indication: DRUG ABUSER
     Dosage: UNK, UNK

REACTIONS (2)
  - ACCIDENTAL EXPOSURE [None]
  - VICTIM OF CHILD ABUSE [None]
